APPROVED DRUG PRODUCT: TRIFERIC
Active Ingredient: FERRIC PYROPHOSPHATE CITRATE
Strength: 272MG IRON/PACKET
Dosage Form/Route: POWDER;INTRAVENOUS
Application: N208551 | Product #001
Applicant: ROCKWELL MEDICAL INC
Approved: Apr 25, 2016 | RLD: Yes | RS: No | Type: DISCN

PATENTS:
Patent 7816404 | Expires: Apr 17, 2029
Patent 7857977 | Expires: Sep 8, 2027